FAERS Safety Report 15972804 (Version 1)
Quarter: 2019Q1

REPORT INFORMATION
  Report Type: Spontaneous
  Country: ES (occurrence: ES)
  Receive Date: 20190216
  Receipt Date: 20190216
  Transmission Date: 20190418
  Serious: Yes (Other)
  Sender: FDA-Public Use
  Company Number: ES-TEVA-2019-ES-1011926

PATIENT
  Age: 37 Year
  Sex: Female

DRUGS (2)
  1. IBUPROFENO (1769A) [Suspect]
     Active Substance: IBUPROFEN
     Dosage: 1 CP
     Route: 048
     Dates: start: 20180508, end: 20180508
  2. AMOXICILINA (108A) [Suspect]
     Active Substance: AMOXICILLIN
     Dosage: 1 CP
     Route: 048
     Dates: start: 20180508, end: 20180508

REACTIONS (3)
  - Lip oedema [Recovered/Resolved]
  - Eyelid oedema [Recovered/Resolved]
  - Urticaria [Recovered/Resolved]

NARRATIVE: CASE EVENT DATE: 20180508
